FAERS Safety Report 16735589 (Version 1)
Quarter: 2019Q3

REPORT INFORMATION
  Report Type: Spontaneous
  Country: RU (occurrence: RU)
  Receive Date: 20190823
  Receipt Date: 20190823
  Transmission Date: 20191005
  Serious: Yes (Death)
  Sender: FDA-Public Use
  Company Number: PHHY2019RU195176

PATIENT

DRUGS (3)
  1. RITUXIMAB. [Suspect]
     Active Substance: RITUXIMAB
     Indication: MANTLE CELL LYMPHOMA
     Dosage: 375 MG/M2, DAY 0
     Route: 065
  2. CYTARABINE. [Suspect]
     Active Substance: CYTARABINE
     Indication: MANTLE CELL LYMPHOMA
     Dosage: 3000 MG, Q12H, DAYS 2-3
     Route: 065
  3. METHOTREXATE. [Suspect]
     Active Substance: METHOTREXATE
     Indication: MANTLE CELL LYMPHOMA
     Dosage: 1000 MG/M2, Q24H (DAY 1)
     Route: 041

REACTIONS (5)
  - Sepsis [Fatal]
  - Acute kidney injury [Fatal]
  - Anuria [Fatal]
  - Mucosal inflammation [Fatal]
  - Septic shock [Fatal]
